FAERS Safety Report 9031944 (Version 1)
Quarter: 2013Q1

REPORT INFORMATION
  Report Type: Spontaneous
  Country: US (occurrence: US)
  Receive Date: 20130125
  Receipt Date: 20130125
  Transmission Date: 20140127
  Serious: Yes (Hospitalization, Other)
  Sender: FDA-Public Use
  Company Number: US-PFIZER INC-2013028373

PATIENT
  Age: 68 Year
  Sex: Male

DRUGS (4)
  1. METHOTREXATE SODIUM [Suspect]
     Dosage: UNK
  2. VINCRISTINE SULFATE [Suspect]
     Dosage: UNK
  3. DASATINIB [Suspect]
     Dosage: UNK
  4. 6-MP [Suspect]
     Dosage: UNK

REACTIONS (3)
  - Febrile neutropenia [Unknown]
  - Toxicity to various agents [Unknown]
  - Pneumonitis [Recovered/Resolved]
